FAERS Safety Report 20361866 (Version 1)
Quarter: 2022Q1

REPORT INFORMATION
  Report Type: Spontaneous
  Country: ZA (occurrence: None)
  Receive Date: 20220121
  Receipt Date: 20220121
  Transmission Date: 20220424
  Serious: Yes (Hospitalization)
  Sender: FDA-Public Use
  Company Number: 2022A025469

PATIENT
  Age: 71 Year
  Sex: Female

DRUGS (10)
  1. ESOMEPRAZOLE [Suspect]
     Active Substance: ESOMEPRAZOLE
     Indication: Ulcer
     Route: 048
  2. ZOPICLONE [Concomitant]
     Active Substance: ZOPICLONE
     Indication: Sleep disorder
     Route: 048
  3. MELATONIN [Concomitant]
     Active Substance: MELATONIN
     Indication: Sleep disorder
     Route: 048
  4. LEVOTHYROXINE [Concomitant]
     Active Substance: LEVOTHYROXINE
     Indication: Thyroid disorder
     Route: 048
  5. LEVOTHYROXINE [Concomitant]
     Active Substance: LEVOTHYROXINE
     Indication: Thyroid disorder
     Route: 048
  6. SERDEP [Concomitant]
     Indication: Depression
     Route: 048
  7. LIPOGEN [Concomitant]
     Indication: Blood cholesterol abnormal
     Route: 048
  8. STILPANE [Concomitant]
     Indication: Pain
     Dosage: AS REQUIRED
     Route: 048
  9. LYRICA [Concomitant]
     Active Substance: PREGABALIN
     Indication: Pain
     Route: 048
  10. AMLOC [Concomitant]
     Indication: Hypertension
     Route: 048

REACTIONS (3)
  - COVID-19 [Unknown]
  - Gangrene [Unknown]
  - Thrombosis [Unknown]
